FAERS Safety Report 13998078 (Version 1)
Quarter: 2017Q3

REPORT INFORMATION
  Report Type: Other
  Country: US (occurrence: US)
  Receive Date: 20170921
  Receipt Date: 20170921
  Transmission Date: 20171128
  Serious: Yes (Other)
  Sender: FDA-Public Use
  Company Number: US-B. BRAUN MEDICAL INC.-2027187

PATIENT
  Age: 30 Year
  Sex: Female

DRUGS (1)
  1. LIDOCAINE. [Suspect]
     Active Substance: LIDOCAINE
     Route: 008

REACTIONS (4)
  - Endotracheal intubation complication [None]
  - Angioedema [Recovered/Resolved]
  - Hypotension [None]
  - Anaphylactic reaction [Recovered/Resolved]
